FAERS Safety Report 6142911-5 (Version None)
Quarter: 2009Q2

REPORT INFORMATION
  Report Type: 
  Country: None (occurrence: None)
  Receive Date: 20090403
  Receipt Date: 20090325
  Transmission Date: 20091009
  Serious: Yes (Hospitalization)
  Sender: FDA-Public Use
  Company Number: DE-JNJFOC-20090400447

PATIENT
  Sex: Female

DRUGS (4)
  1. TRAMADOL HCL [Suspect]
     Indication: DRUG USE FOR UNKNOWN INDICATION
     Route: 048
  2. OFLOXACIN [Suspect]
     Indication: ARTHRITIS BACTERIAL
     Route: 048
  3. REPAGLINIDE [Concomitant]
     Route: 065
  4. CORTANCYL [Concomitant]
     Route: 065

REACTIONS (3)
  - FAECALOMA [None]
  - HYPONATRAEMIA [None]
  - URINARY RETENTION [None]
